FAERS Safety Report 14332027 (Version 2)
Quarter: 2018Q1

REPORT INFORMATION
  Report Type: Report from Study
  Country: US (occurrence: US)
  Receive Date: 20171228
  Receipt Date: 20180111
  Transmission Date: 20180509
  Serious: Yes (Other)
  Sender: FDA-Public Use
  Company Number: US-GILEAD-2017-0312309

PATIENT
  Age: 39 Year
  Sex: Female
  Weight: 73.47 kg

DRUGS (16)
  1. AMBRISENTAN [Suspect]
     Active Substance: AMBRISENTAN
     Indication: PULMONARY HYPERTENSION
     Dosage: 10 MG, QD
     Route: 048
     Dates: start: 20120823
  2. BUMEX [Concomitant]
     Active Substance: BUMETANIDE
  3. POTASSIUM [Concomitant]
     Active Substance: POTASSIUM
  4. KLOR-CON [Concomitant]
     Active Substance: POTASSIUM CHLORIDE
  5. LEVOTHYROXINE. [Concomitant]
     Active Substance: LEVOTHYROXINE
  6. SILDENAFIL. [Concomitant]
     Active Substance: SILDENAFIL
  7. L-THYROXINE                        /00068001/ [Concomitant]
     Active Substance: LEVOTHYROXINE
  8. METOPROLOL TARTRATE. [Concomitant]
     Active Substance: METOPROLOL TARTRATE
  9. SPIRONOLACTONE. [Concomitant]
     Active Substance: SPIRONOLACTONE
  10. ATIVAN [Concomitant]
     Active Substance: LORAZEPAM
  11. ALDACTONE [Concomitant]
     Active Substance: SPIRONOLACTONE
  12. REVATIO [Concomitant]
     Active Substance: SILDENAFIL CITRATE
  13. EPOPROSTENOL. [Concomitant]
     Active Substance: EPOPROSTENOL
  14. VELETRI [Suspect]
     Active Substance: EPOPROSTENOL
     Indication: PRODUCT USED FOR UNKNOWN INDICATION
     Dosage: 1.5 MG, UNK
     Route: 065
  15. TOPROL XL [Concomitant]
     Active Substance: METOPROLOL SUCCINATE
  16. SODIUM CHLORIDE. [Concomitant]
     Active Substance: SODIUM CHLORIDE

REACTIONS (13)
  - Complication associated with device [Recovered/Resolved]
  - Tachyarrhythmia [Unknown]
  - Hepatic congestion [Unknown]
  - Nervousness [Unknown]
  - Device malfunction [Recovered/Resolved]
  - Central venous catheterisation [Unknown]
  - Blood potassium decreased [Not Recovered/Not Resolved]
  - Muscle spasms [Unknown]
  - Transplant evaluation [Not Recovered/Not Resolved]
  - Tricuspid valve disease [Not Recovered/Not Resolved]
  - Hypokalaemia [Not Recovered/Not Resolved]
  - Liver disorder [Unknown]
  - Chronic right ventricular failure [Not Recovered/Not Resolved]

NARRATIVE: CASE EVENT DATE: 201712
